FAERS Safety Report 15289527 (Version 1)
Quarter: 2018Q3

REPORT INFORMATION
  Report Type: Spontaneous
  Country: BR (occurrence: BR)
  Receive Date: 20180817
  Receipt Date: 20180817
  Transmission Date: 20181010
  Serious: Yes (Other)
  Sender: FDA-Public Use
  Company Number: BR-MYLANLABS-2018M1062342

PATIENT
  Sex: Male
  Weight: 95 kg

DRUGS (2)
  1. LEPONEX [Suspect]
     Active Substance: CLOZAPINE
     Dosage: 2 DF, AM
     Route: 048
  2. LEPONEX [Suspect]
     Active Substance: CLOZAPINE
     Indication: AUTISM SPECTRUM DISORDER
     Dosage: 4 DF, PM
     Route: 048

REACTIONS (3)
  - Autism spectrum disorder [Unknown]
  - Condition aggravated [Unknown]
  - Product use in unapproved indication [Not Recovered/Not Resolved]
